FAERS Safety Report 5374960-9 (Version None)
Quarter: 2007Q2

REPORT INFORMATION
  Report Type: 
  Country: None (occurrence: None)
  Receive Date: 20070629
  Receipt Date: 20070620
  Transmission Date: 20071010
  Serious: Yes (Other)
  Sender: FDA-Public Use
  Company Number: US-ELI_LILLY_AND_COMPANY-US200706005286

PATIENT
  Sex: Male

DRUGS (2)
  1. ZYPREXA [Suspect]
  2. LAMICTAL [Concomitant]

REACTIONS (1)
  - PNEUMONIA [None]
